FAERS Safety Report 9675349 (Version 2)
Quarter: 2013Q4

REPORT INFORMATION
  Report Type: Spontaneous
  Country: US (occurrence: US)
  Receive Date: 20131107
  Receipt Date: 20131118
  Transmission Date: 20140711
  Serious: No
  Sender: FDA-Public Use
  Company Number: US-PFIZER INC-2013316881

PATIENT
  Age: 34 Year
  Sex: Female
  Weight: 104 kg

DRUGS (6)
  1. CHANTIX [Suspect]
     Indication: SMOKING CESSATION THERAPY
     Dosage: 0.5 MG, DAILY
     Dates: start: 20131028, end: 2013
  2. CHANTIX [Suspect]
     Dosage: 0.5 MG, UNK
     Route: 048
     Dates: start: 2013, end: 20131101
  3. SEASONALE [Concomitant]
     Indication: CONTRACEPTION
     Dosage: UNK, 1X/DAY
  4. BUSPAR [Concomitant]
     Indication: GENERALISED ANXIETY DISORDER
     Dosage: 15 MG, 2X/DAY
     Dates: start: 201308
  5. NEXIUM [Concomitant]
     Indication: GASTROOESOPHAGEAL REFLUX DISEASE
     Dosage: 40 (UNITS NOT PROVIDED) 1X/DAY
     Dates: start: 201305
  6. B12-VITAMIN [Concomitant]
     Dosage: UNK

REACTIONS (2)
  - Rash generalised [Unknown]
  - Chest pain [Unknown]
